FAERS Safety Report 6144990-8 (Version None)
Quarter: 2009Q2

REPORT INFORMATION
  Report Type: 
  Country: None (occurrence: None)
  Receive Date: 20090406
  Receipt Date: 20090401
  Transmission Date: 20091009
  Serious: Yes (Other)
  Sender: FDA-Public Use
  Company Number: IT-BAYER-200917759GPV

PATIENT
  Age: 79 Year
  Sex: Male

DRUGS (1)
  1. ASPIRIN [Suspect]
     Indication: DRUG USE FOR UNKNOWN INDICATION

REACTIONS (3)
  - EOSINOPHIL COUNT INCREASED [None]
  - EOSINOPHILIC COLITIS [None]
  - HAEMATOCHEZIA [None]
